FAERS Safety Report 10251356 (Version 1)
Quarter: 2014Q2

REPORT INFORMATION
  Report Type: Report from Study
  Country: JP (occurrence: JP)
  Receive Date: 20140622
  Receipt Date: 20140622
  Transmission Date: 20141212
  Serious: No
  Sender: FDA-Public Use
  Company Number: PHHY2013JP157142

PATIENT
  Age: 60 Year
  Sex: Female

DRUGS (2)
  1. TASIGNA [Suspect]
     Indication: CHRONIC MYELOID LEUKAEMIA
     Dosage: UNK UKN, UNK
  2. PAXIL//PAROXETINE HYDROCHLORIDE [Concomitant]
     Dosage: UNK UKN, UNK

REACTIONS (1)
  - Alopecia [Unknown]
